FAERS Safety Report 17442410 (Version 2)
Quarter: 2020Q1

REPORT INFORMATION
  Report Type: Spontaneous
  Country: US (occurrence: US)
  Receive Date: 20200220
  Receipt Date: 20200228
  Transmission Date: 20200409
  Serious: No
  Sender: FDA-Public Use
  Company Number: US-LEXICON PHARMACEUTICALS, INC-20-1606-00124

PATIENT
  Sex: Female

DRUGS (6)
  1. SIMVASTATIN. [Concomitant]
     Active Substance: SIMVASTATIN
  2. VITAMIN D-1000 [Concomitant]
  3. CALCIUM [Concomitant]
     Active Substance: CALCIUM
  4. XERMELO [Suspect]
     Active Substance: TELOTRISTAT ETHYL
     Indication: NEUROENDOCRINE TUMOUR
     Dates: start: 20181008
  5. PLAVIX [Concomitant]
     Active Substance: CLOPIDOGREL BISULFATE
  6. OCTREOTIDE. [Suspect]
     Active Substance: OCTREOTIDE

REACTIONS (4)
  - Constipation [Unknown]
  - Administration site reaction [Unknown]
  - Drug ineffective [Unknown]
  - Fatigue [Unknown]
